FAERS Safety Report 8003584-X (Version None)
Quarter: 2011Q4

REPORT INFORMATION
  Report Type: 
  Country: None (occurrence: None)
  Receive Date: 20111222
  Receipt Date: 20111213
  Transmission Date: 20120403
  Serious: Yes (Hospitalization)
  Sender: FDA-Public Use
  Company Number: IE-MEDIMMUNE-MEDI-0014230

PATIENT
  Sex: Female
  Weight: 7.72 kg

DRUGS (3)
  1. SYNAGIS [Suspect]
     Indication: HEART DISEASE CONGENITAL
     Route: 030
     Dates: start: 20110118, end: 20110118
  2. TOPIRAMATE [Concomitant]
  3. LEVETIRACETAM [Concomitant]

REACTIONS (1)
  - RESPIRATORY TRACT INFECTION [None]
